FAERS Safety Report 22055774 (Version 2)
Quarter: 2023Q2

REPORT INFORMATION
  Report Type: Spontaneous
  Country: US (occurrence: US)
  Receive Date: 20230302
  Receipt Date: 20230428
  Transmission Date: 20230721
  Serious: Yes (Hospitalization, Other)
  Sender: FDA-Public Use
  Company Number: US-ALLERGAN-2305697US

PATIENT
  Sex: Female
  Weight: 42.63 kg

DRUGS (3)
  1. VRAYLAR [Suspect]
     Active Substance: CARIPRAZINE
     Indication: Bipolar I disorder
     Dosage: UNK
     Route: 048
  2. SPIRONOLACTONE [Concomitant]
     Active Substance: SPIRONOLACTONE
     Indication: Hypertension
     Dosage: UNK, QD
  3. COENZIMA Q [Concomitant]
     Indication: Blood pressure abnormal

REACTIONS (6)
  - Cerebrovascular accident [Recovering/Resolving]
  - Dysarthria [Recovering/Resolving]
  - Speech disorder [Recovering/Resolving]
  - Muscular weakness [Unknown]
  - Manic symptom [Unknown]
  - Hypertension [Recovering/Resolving]

NARRATIVE: CASE EVENT DATE: 20220918
